FAERS Safety Report 14471445 (Version 1)
Quarter: 2018Q1

REPORT INFORMATION
  Report Type: Spontaneous
  Country: FR (occurrence: FR)
  Receive Date: 20180131
  Receipt Date: 20180131
  Transmission Date: 20180509
  Serious: Yes (Hospitalization)
  Sender: FDA-Public Use
  Company Number: FR-PFIZER INC-2018034133

PATIENT
  Age: 56 Year
  Sex: Female
  Weight: 47 kg

DRUGS (1)
  1. PACLITAXEL. [Suspect]
     Active Substance: PACLITAXEL
     Indication: OVARIAN CYST
     Dosage: 120 MG, CYCLIC
     Route: 041
     Dates: start: 2017

REACTIONS (7)
  - Tonsillitis [Unknown]
  - Alopecia [Unknown]
  - Nausea [Unknown]
  - Weight decreased [Unknown]
  - Aplasia [Unknown]
  - Product use in unapproved indication [Unknown]
  - Vomiting [Unknown]

NARRATIVE: CASE EVENT DATE: 20170905
